FAERS Safety Report 24728540 (Version 2)
Quarter: 2024Q4

REPORT INFORMATION
  Report Type: Spontaneous
  Country: TR (occurrence: TR)
  Receive Date: 20241212
  Receipt Date: 20241227
  Transmission Date: 20250114
  Serious: Yes (Hospitalization, Other)
  Sender: DAIICHI
  Company Number: TR-DSJP-DS-2024-111753-TR

PATIENT
  Age: 67 Year
  Sex: Male

DRUGS (1)
  1. ENHERTU [Suspect]
     Active Substance: FAM-TRASTUZUMAB DERUXTECAN-NXKI
     Indication: Biliary neoplasm
     Dosage: UNK
     Route: 065

REACTIONS (4)
  - Myelosuppression [Recovered/Resolved]
  - Lymphopenia [Recovered/Resolved]
  - Diarrhoea [Recovered/Resolved]
  - Off label use [Recovered/Resolved]
